FAERS Safety Report 24092235 (Version 1)
Quarter: 2024Q3

REPORT INFORMATION
  Report Type: Spontaneous
  Country: US (occurrence: None)
  Receive Date: 20240714
  Receipt Date: 20240714
  Transmission Date: 20241016
  Serious: Yes (Disabling, Other)
  Sender: Public
  Company Number: None

PATIENT
  Age: 29 Year
  Sex: Female
  Weight: 67.5 kg

DRUGS (2)
  1. DIAZEPAM [Suspect]
     Active Substance: DIAZEPAM
     Indication: Genito-pelvic pain/penetration disorder
     Dosage: 1 SUPPOSITORY DAILY VAGINAL
     Route: 067
  2. TAMPONS AND PADS [Concomitant]

REACTIONS (3)
  - Vulvovaginal pain [None]
  - Product formulation issue [None]
  - Product solubility abnormal [None]

NARRATIVE: CASE EVENT DATE: 20240701
